FAERS Safety Report 23618606 (Version 1)
Quarter: 2024Q1

REPORT INFORMATION
  Report Type: Spontaneous
  Country: CA (occurrence: CA)
  Receive Date: 20240311
  Receipt Date: 20240311
  Transmission Date: 20240410
  Serious: Yes (Other)
  Sender: FDA-Public Use
  Company Number: CA-PFIZER INC-202300352979

PATIENT
  Age: 32 Year
  Sex: Female

DRUGS (2)
  1. ABRILADA [Suspect]
     Active Substance: ADALIMUMAB-AFZB
     Indication: Crohn^s disease
     Dosage: 40 MG, EVERY OTHER WEEK
     Route: 058
     Dates: start: 20231203
  2. ABRILADA [Suspect]
     Active Substance: ADALIMUMAB-AFZB
     Dosage: 40 MG, EVERY OTHER WEEK
     Route: 058
     Dates: start: 202403

REACTIONS (8)
  - Abortion spontaneous [Unknown]
  - Drug ineffective [Unknown]
  - Gastrointestinal disorder [Unknown]
  - Sinusitis [Unknown]
  - Nasopharyngitis [Unknown]
  - Pyrexia [Unknown]
  - Off label use [Unknown]
  - Off label use [Unknown]

NARRATIVE: CASE EVENT DATE: 20240101
